FAERS Safety Report 18303225 (Version 2)
Quarter: 2020Q4

REPORT INFORMATION
  Report Type: Spontaneous
  Country: CA (occurrence: CA)
  Receive Date: 20200923
  Receipt Date: 20201029
  Transmission Date: 20210113
  Serious: Yes (Death, Hospitalization, Other)
  Sender: FDA-Public Use
  Company Number: CA-PFIZER INC-2020176909

PATIENT
  Age: 61 Year
  Sex: Female

DRUGS (12)
  1. INLYTA [Suspect]
     Active Substance: AXITINIB
     Dosage: 2 MG, 2X/DAY (1 MONTH 12 REPEATS)
     Route: 048
     Dates: start: 2020, end: 2020
  2. VITAMIN C [Concomitant]
     Active Substance: ASCORBIC ACID
     Dosage: UNK (ONCE EVERY TWO DAYS)
  3. KEYTRUDA [Concomitant]
     Active Substance: PEMBROLIZUMAB
     Indication: RENAL CELL CARCINOMA
     Dosage: UNK (Q 3 WEEKS)
  4. HYDROCHLOROTHIAZIDE. [Concomitant]
     Active Substance: HYDROCHLOROTHIAZIDE
     Dosage: 4 MG
  5. INLYTA [Suspect]
     Active Substance: AXITINIB
     Indication: RENAL CELL CARCINOMA
     Dosage: 5 MG, 2X/DAY (REPEAT 10X, DIRECTIONS 30 DAYS)
     Route: 048
     Dates: start: 20200505, end: 20200531
  6. AMLODIPINE [Concomitant]
     Active Substance: AMLODIPINE BESYLATE
     Dosage: 5 MG, 1X/DAY
  7. CYCLOBENZAPRINE. [Concomitant]
     Active Substance: CYCLOBENZAPRINE
     Dosage: 10 MG, 2X/DAY (EVERY 12 HOURS)
  8. OXYCODONE AND ACETAMINOPHEN [Concomitant]
     Active Substance: ACETAMINOPHEN\OXYCODONE HYDROCHLORIDE
     Dosage: UNK, AS NEEDED (5/325 MG TAKE ONE TO TWO TABLETS (4 TABS PER DAY))
  9. FERAMAX [Concomitant]
     Active Substance: IRON\POLYSACCHARIDES
     Dosage: UNK (ONCE EVERY TWO DAYS)
  10. HYDROCHLOROTHIAZIDE. [Concomitant]
     Active Substance: HYDROCHLOROTHIAZIDE
     Dosage: 1.25 MG
  11. INLYTA [Suspect]
     Active Substance: AXITINIB
     Dosage: 5 MG, 2X/DAY (BID, EVERY 12 HOURS)
     Route: 048
     Dates: start: 20200702, end: 20200724
  12. PERINDOPRIL [Concomitant]
     Active Substance: PERINDOPRIL
     Dosage: 4 MG (4MG/1.25MG)

REACTIONS (10)
  - Haemoglobin decreased [Unknown]
  - Aphonia [Recovering/Resolving]
  - Death [Fatal]
  - Fatigue [Not Recovered/Not Resolved]
  - Off label use [Unknown]
  - Nausea [Unknown]
  - Haematemesis [Unknown]
  - Oropharyngeal pain [Unknown]
  - Dysphagia [Unknown]
  - Product use in unapproved indication [Unknown]

NARRATIVE: CASE EVENT DATE: 2020
